FAERS Safety Report 10791891 (Version 1)
Quarter: 2015Q1

REPORT INFORMATION
  Report Type: Spontaneous
  Country: TR (occurrence: TR)
  Receive Date: 20150213
  Receipt Date: 20150213
  Transmission Date: 20150721
  Serious: Yes (Other)
  Sender: FDA-Public Use
  Company Number: TR-RANBAXY-2015RR-92818

PATIENT
  Age: 57 Year
  Sex: Male

DRUGS (2)
  1. LIPOSOMAL AMPHOTERICIN B [Suspect]
     Active Substance: AMPHOTERICIN B
     Indication: CANDIDA ENDOPHTHALMITIS
     Dosage: 5 MG/KG, DAILY
     Route: 042
  2. FLUCONAZOLE. [Suspect]
     Active Substance: FLUCONAZOLE
     Indication: CANDIDA ENDOPHTHALMITIS
     Dosage: 100 MG, QID, TABLETS
     Route: 048

REACTIONS (2)
  - Hypersensitivity [Unknown]
  - Hepatic enzyme increased [Unknown]
